FAERS Safety Report 17289338 (Version 3)
Quarter: 2024Q4

REPORT INFORMATION
  Report Type: Report from Study
  Country: JP (occurrence: JP)
  Receive Date: 20200120
  Receipt Date: 20241001
  Transmission Date: 20250115
  Serious: Yes (Hospitalization)
  Sender: PFIZER
  Company Number: JP-PFIZER INC-2017525319

PATIENT
  Age: 74 Year
  Sex: Male
  Weight: 71.2 kg

DRUGS (14)
  1. VYNDAQEL [Suspect]
     Active Substance: TAFAMIDIS MEGLUMINE
     Indication: Hereditary neuropathic amyloidosis
     Dosage: 20 MG, 1X/DAY
     Route: 048
     Dates: start: 20141022
  2. NAFTOPIDIL [Concomitant]
     Active Substance: NAFTOPIDIL
     Indication: Pollakiuria
     Dosage: 75 MG, 1X/DAY
     Route: 048
     Dates: start: 20140509
  3. TOVIAZ [Concomitant]
     Active Substance: FESOTERODINE FUMARATE
     Indication: Hypertonic bladder
     Dosage: 4 MG, 1X/DAY
     Route: 048
     Dates: start: 20140509
  4. CYMBALTA [Concomitant]
     Active Substance: DULOXETINE HYDROCHLORIDE
     Indication: Pain
     Dosage: 20 MG, 1X/DAY
     Route: 048
     Dates: start: 20140707
  5. ALINAMIN F [Concomitant]
     Active Substance: FURSULTIAMINE HYDROCHLORIDE
     Indication: Neuropathy peripheral
     Dosage: 25 MG, 1X/DAY
     Route: 048
     Dates: start: 20140516
  6. METHYLCOBALAMIN [Concomitant]
     Active Substance: METHYLCOBALAMIN
     Indication: Neuropathy peripheral
     Dosage: 500 UG, 3X/DAY
     Route: 048
     Dates: start: 20140415
  7. FOLIC ACID [Concomitant]
     Active Substance: FOLIC ACID
     Dosage: 5 MG, 1X/DAY
     Route: 048
     Dates: start: 20150114
  8. JUVELA [Concomitant]
     Active Substance: .ALPHA.-TOCOPHEROL\RETINOL
     Dosage: 200 MG, 3X/DAY
     Route: 048
     Dates: start: 20160222
  9. NEUROTROPIN [Concomitant]
     Active Substance: NEUROTROPIN
     Dosage: 8 DF, 2X/DAY
     Route: 048
     Dates: start: 20170410
  10. OLMESARTAN MEDOXOMIL [Concomitant]
     Active Substance: OLMESARTAN MEDOXOMIL
     Indication: Hypertension
     Dosage: 20 MG, 1X/DAY
     Route: 048
     Dates: start: 20140415, end: 20150401
  11. EFINACONAZOLE [Concomitant]
     Active Substance: EFINACONAZOLE
     Indication: Nail disorder
     Dosage: UNK UNK, 1X/DAY
     Route: 062
     Dates: start: 20170410
  12. PETROLATUM SALICYLATE [Concomitant]
     Dosage: UNK UNK, 1X/DAY
     Route: 062
     Dates: start: 20170502
  13. ZEFNART [Concomitant]
     Dosage: UNK UNK, 1X/DAY
     Route: 062
     Dates: start: 20170410
  14. GENTAMICIN SULFATE [Concomitant]
     Active Substance: GENTAMICIN SULFATE
     Dosage: UNK UNK, 1X/DAY
     Route: 062
     Dates: start: 20170410

REACTIONS (3)
  - Haematuria [Recovered/Resolved]
  - Urinary retention [Recovered/Resolved]
  - Haematuria [Recovered/Resolved]

NARRATIVE: CASE EVENT DATE: 20170517
